FAERS Safety Report 23874325 (Version 1)
Quarter: 2024Q2

REPORT INFORMATION
  Report Type: Spontaneous
  Country: FR (occurrence: FR)
  Receive Date: 20240520
  Receipt Date: 20240520
  Transmission Date: 20240715
  Serious: Yes (Hospitalization)
  Sender: FDA-Public Use
  Company Number: None

PATIENT
  Age: 48 Year
  Sex: Male

DRUGS (9)
  1. ACETAMINOPHEN [Suspect]
     Active Substance: ACETAMINOPHEN
     Indication: Product used for unknown indication
     Dosage: 1-2 G/D
     Route: 048
     Dates: start: 20240221, end: 20240306
  2. ENOXAPARIN [Concomitant]
     Active Substance: ENOXAPARIN
     Indication: Product used for unknown indication
     Dosage: 18 000 UI/D, ENOXAPARIN SODIUM ((MAMMAL/PIG/GUT MUCOSA))
     Route: 058
     Dates: start: 20240221, end: 20240223
  3. MORPHINE SULFATE [Suspect]
     Active Substance: MORPHINE SULFATE
     Indication: Product used for unknown indication
     Dosage: IF NECESSARY
     Route: 048
     Dates: start: 20240222
  4. NEFOPAM [Suspect]
     Active Substance: NEFOPAM
     Indication: Product used for unknown indication
     Dosage: IF NECESSARY, NEFOPAM HYDROCHLORIDE
     Route: 048
     Dates: start: 20240221, end: 20240228
  5. AMLODIPINE [Concomitant]
     Active Substance: AMLODIPINE BESYLATE
     Indication: Product used for unknown indication
     Dosage: 5 MG/D
     Route: 048
  6. NORMACOL [Suspect]
     Active Substance: HERBALS\KARAYA GUM
     Indication: Product used for unknown indication
     Dosage: IF NECESSARY
     Route: 054
     Dates: start: 20240222, end: 20240228
  7. MOVICOL [Suspect]
     Active Substance: POLYETHYLENE GLYCOL 3350\POTASSIUM CHLORIDE\SODIUM BICARBONATE\SODIUM CHLORIDE
     Indication: Product used for unknown indication
     Dosage: 4 SACHETS PER DAY
     Route: 048
     Dates: start: 20240221, end: 20240228
  8. TRAMADOL [Suspect]
     Active Substance: TRAMADOL\TRAMADOL HYDROCHLORIDE
     Indication: Product used for unknown indication
     Dosage: IF NECESSARY, TRAMADOL HYDROCHLORIDE
     Route: 048
     Dates: start: 20240222, end: 20240228
  9. TINZAPARIN [Suspect]
     Active Substance: TINZAPARIN
     Indication: Product used for unknown indication
     Dosage: 0,8 ML/D, SODIUM ((MAMMAL/PIG/GUTTUM MUCOSA))
     Route: 058
     Dates: start: 20240223, end: 20240227

REACTIONS (1)
  - Hepatic cytolysis [Recovering/Resolving]

NARRATIVE: CASE EVENT DATE: 20240226
